FAERS Safety Report 9558725 (Version 1)
Quarter: 2013Q3

REPORT INFORMATION
  Report Type: Spontaneous
  Country: US (occurrence: US)
  Receive Date: 20130926
  Receipt Date: 20130926
  Transmission Date: 20140515
  Serious: No
  Sender: FDA-Public Use
  Company Number: US-BIOGENIDEC-2013BI046234

PATIENT
  Age: 47 Year
  Sex: Male

DRUGS (4)
  1. TECFIDERA [Suspect]
     Indication: MULTIPLE SCLEROSIS
     Route: 048
     Dates: start: 20130517
  2. ZANAFLEX [Concomitant]
     Indication: RESTLESS LEGS SYNDROME
  3. LYRICA [Concomitant]
     Indication: SLEEP DISORDER THERAPY
  4. LEXAPRO [Concomitant]

REACTIONS (1)
  - Flushing [Recovered/Resolved]
